FAERS Safety Report 13910394 (Version 1)
Quarter: 2017Q3

REPORT INFORMATION
  Report Type: Other
  Country: CA (occurrence: CA)
  Receive Date: 20170828
  Receipt Date: 20170828
  Transmission Date: 20171127
  Serious: Yes (Other)
  Sender: FDA-Public Use
  Company Number: CA-APOTEX-2017AP016954

PATIENT
  Age: 57 Year
  Sex: Male

DRUGS (1)
  1. APO-DICLOFENAC [Suspect]
     Active Substance: DICLOFENAC
     Indication: INFLAMMATION
     Route: 065

REACTIONS (1)
  - Punctate keratitis [Unknown]
